FAERS Safety Report 9089436 (Version 1)
Quarter: 2013Q1

REPORT INFORMATION
  Report Type: Report from Study
  Country: US (occurrence: US)
  Receive Date: 20130201
  Receipt Date: 20130201
  Transmission Date: 20140127
  Serious: No
  Sender: FDA-Public Use
  Company Number: US-ABBOTT-12P-163-1023838-00

PATIENT
  Age: 39 Year
  Sex: Female

DRUGS (8)
  1. HUMIRA [Suspect]
     Indication: ANKYLOSING SPONDYLITIS
     Dates: start: 20121105
  2. PENTASA [Concomitant]
     Indication: CROHN^S DISEASE
  3. ZYRTEC [Concomitant]
     Indication: HYPERSENSITIVITY
     Dosage: OVER THE COUNTER
  4. SUPER B [Concomitant]
     Indication: PRODUCT USED FOR UNKNOWN INDICATION
  5. CINNAMON [Concomitant]
     Indication: MEDICAL DIET
  6. GLUCOSAMINE [Concomitant]
     Indication: PRODUCT USED FOR UNKNOWN INDICATION
  7. TYLENOL [Concomitant]
     Indication: PRODUCT USED FOR UNKNOWN INDICATION
  8. EFFEXOR XR [Concomitant]
     Indication: DEPRESSION

REACTIONS (5)
  - Insomnia [Recovering/Resolving]
  - Inappropriate schedule of drug administration [Recovering/Resolving]
  - Incorrect storage of drug [Recovering/Resolving]
  - Device malfunction [Recovering/Resolving]
  - Incorrect dose administered [Recovering/Resolving]
